FAERS Safety Report 10446945 (Version 2)
Quarter: 2014Q3

REPORT INFORMATION
  Report Type: Report from Study
  Country: US (occurrence: US)
  Receive Date: 20140911
  Receipt Date: 20140911
  Transmission Date: 20150326
  Serious: Yes (Death, Hospitalization, Other)
  Sender: FDA-Public Use
  Company Number: US-ASTELLAS-2014US011859

PATIENT
  Sex: Male

DRUGS (3)
  1. ERLOTINIB [Suspect]
     Active Substance: ERLOTINIB
     Indication: NON-SMALL CELL LUNG CANCER
  2. ERLOTINIB [Suspect]
     Active Substance: ERLOTINIB
     Indication: MALIGNANT RESPIRATORY TRACT NEOPLASM
     Route: 048
     Dates: start: 200606, end: 20060802
  3. ERLOTINIB [Suspect]
     Active Substance: ERLOTINIB
     Indication: OROPHARYNGEAL CANCER

REACTIONS (2)
  - Adrenal gland cancer [Fatal]
  - Oropharyngeal cancer [Fatal]
